FAERS Safety Report 7052778-9 (Version None)
Quarter: 2010Q4

REPORT INFORMATION
  Report Type: 
  Country: None (occurrence: None)
  Receive Date: 20101014
  Receipt Date: 20101005
  Transmission Date: 20110411
  Serious: Yes (Hospitalization, Disabling)
  Sender: FDA-Public Use
  Company Number: 2010SP004577

PATIENT
  Age: 46 Year
  Sex: Female
  Weight: 96.1626 kg

DRUGS (3)
  1. NUVARING [Suspect]
     Indication: CONTRACEPTION
     Dosage: VAG
     Route: 067
     Dates: start: 20070101, end: 20070101
  2. EXCEDRIN (MIGRAINE) [Concomitant]
  3. NAPROXEN [Concomitant]

REACTIONS (3)
  - DEEP VEIN THROMBOSIS [None]
  - IMPAIRED WORK ABILITY [None]
  - PULMONARY EMBOLISM [None]
